FAERS Safety Report 20809910 (Version 1)
Quarter: 2022Q2

REPORT INFORMATION
  Report Type: Report from Study
  Country: US (occurrence: US)
  Receive Date: 20220510
  Receipt Date: 20220510
  Transmission Date: 20220720
  Serious: No
  Sender: FDA-Public Use
  Company Number: US-NOVARTISTESTPH-NVSC2022US106772

PATIENT
  Sex: Male
  Weight: 72.57 kg

DRUGS (1)
  1. ENTRESTO [Suspect]
     Active Substance: SACUBITRIL\VALSARTAN
     Indication: Cardiac failure chronic
     Dosage: UNK UNK, BID (97103 MG (MILLIGRAM))
     Route: 048
     Dates: start: 2021

REACTIONS (1)
  - Throat clearing [Recovering/Resolving]
